FAERS Safety Report 8889327 (Version 1)
Quarter: 2012Q4

REPORT INFORMATION
  Report Type: Spontaneous
  Country: US (occurrence: None)
  Receive Date: 20121101
  Receipt Date: 20121101
  Transmission Date: 20130627
  Serious: No
  Sender: FDA-Public Use
  Company Number: None

PATIENT

DRUGS (1)
  1. LIPITOR GENERIC [Suspect]
     Route: 048

REACTIONS (3)
  - Insomnia [None]
  - Product substitution issue [None]
  - Hepatic enzyme increased [None]
